FAERS Safety Report 8095056 (Version 2)
Quarter: 2012Q4

REPORT INFORMATION
  Report Type: 
  Country: US (occurrence: US)
  Receive Date: 20110817
  Receipt Date: 20121003
  Transmission Date: 20130627
  Serious: Yes (Hospitalization)
  Sender: FDA-Public Use
  Company Number: US-US-EMD SERONO, INC.-7076399

PATIENT
  Age: 65 Year
  Sex: Female

DRUGS (3)
  1. REBIF [Suspect]
     Indication: MULTIPLE SCLEROSIS
     Route: 058
     Dates: start: 20030625, end: 201102
  2. ATENOLOL [Concomitant]
     Indication: HYPERTENSION
  3. BACLOFEN [Concomitant]
     Indication: NEUROGENIC BLADDER

REACTIONS (2)
  - Encephalopathy [Recovered/Resolved]
  - Tremor [Unknown]
